FAERS Safety Report 5002836-5 (Version None)
Quarter: 2006Q2

REPORT INFORMATION
  Report Type: 
  Country: None (occurrence: None)
  Receive Date: 20060512
  Receipt Date: 20060425
  Transmission Date: 20061013
  Serious: Yes (Hospitalization)
  Sender: FDA-Public Use
  Company Number: US200602005539

PATIENT
  Age: 80 Year
  Sex: Female
  Weight: 64.4 kg

DRUGS (13)
  1. FORTEO [Suspect]
     Dosage: 20 UG, DAILY (1/D)
     Dates: start: 20051207
  2. FORTEO [Concomitant]
  3. MULTIVITAMINS (ASCORBIC ACID, ERGOCALCIFEROL, FOLIC ACID, NICOTINAMIDE [Concomitant]
  4. WARFARIN SODIUM [Concomitant]
  5. ATENOLOL [Concomitant]
  6. FLECAINIDE ACETATE [Concomitant]
  7. CELEXA [Concomitant]
  8. CALCIUM GLUCONATE [Concomitant]
  9. NASONEX [Concomitant]
  10. PREVACID [Concomitant]
  11. TYLENOL W/ CODEINE NO. 3 [Concomitant]
  12. COLACE (DOCUSATE SODIUM) [Concomitant]
  13. LIPITOR [Concomitant]

REACTIONS (2)
  - MYOCARDIAL INFARCTION [None]
  - PHARMACEUTICAL PRODUCT COMPLAINT [None]
